FAERS Safety Report 13142615 (Version 1)
Quarter: 2017Q1

REPORT INFORMATION
  Report Type: Spontaneous
  Country: US (occurrence: US)
  Receive Date: 20170123
  Receipt Date: 20170123
  Transmission Date: 20170428
  Serious: No
  Sender: FDA-Public Use
  Company Number: US-BAUSCH-BL-2016-007662

PATIENT
  Age: 78 Year
  Sex: Female

DRUGS (2)
  1. TOBRAMYCIN OPHTHALMIC SOLUTION USP 0.3% [Suspect]
     Active Substance: TOBRAMYCIN
     Indication: EYE IRRITATION
     Dosage: ONE DROP IN THE LEFT EYE THREE TIMES DAILY FOR FIVE DAYS
     Route: 047
     Dates: start: 20160325, end: 20160326
  2. TOBRAMYCIN OPHTHALMIC SOLUTION USP 0.3% [Suspect]
     Active Substance: TOBRAMYCIN
     Dosage: ONE DROP IN THE LEFT EYE TWICE A DAY FOR FIVE DAYS
     Route: 047

REACTIONS (1)
  - Diarrhoea [Recovered/Resolved]

NARRATIVE: CASE EVENT DATE: 20160326
